FAERS Safety Report 7018272-6 (Version None)
Quarter: 2010Q3

REPORT INFORMATION
  Report Type: 
  Country: None (occurrence: None)
  Receive Date: 20100928
  Receipt Date: 20100920
  Transmission Date: 20110219
  Serious: Yes (Hospitalization, Other)
  Sender: FDA-Public Use
  Company Number: US-JNJFOC-20100907046

PATIENT
  Sex: Female
  Weight: 47.17 kg

DRUGS (9)
  1. CONCERTA [Suspect]
     Indication: DEPRESSION
     Route: 048
  2. LOVASTATIN [Concomitant]
     Indication: BLOOD CHOLESTEROL INCREASED
     Route: 048
  3. VITAMIN D [Concomitant]
     Indication: OSTEOPOROSIS
     Route: 048
  4. MAGNESIUM [Concomitant]
     Indication: OSTEOPOROSIS
     Route: 048
  5. CALCIUM [Concomitant]
     Indication: OSTEOPOROSIS
     Route: 048
  6. OMEPRAZOLE [Concomitant]
     Indication: IRRITABLE BOWEL SYNDROME
     Route: 048
  7. OMEPRAZOLE [Concomitant]
     Indication: PARESIS
     Route: 048
  8. DARVOCET-N 100 [Concomitant]
     Indication: BACK PAIN
     Dosage: 100- 2 AT A TIME AS NEEDED
     Route: 048
  9. ZOLPIDEM [Concomitant]
     Indication: SLEEP DISORDER
     Dosage: DAILY AS NEEDED
     Route: 048

REACTIONS (4)
  - ATTENTION DEFICIT/HYPERACTIVITY DISORDER [None]
  - HOSPITALISATION [None]
  - HYPERHIDROSIS [None]
  - OFF LABEL USE [None]
